FAERS Safety Report 5000539-4 (Version None)
Quarter: 2006Q2

REPORT INFORMATION
  Report Type: 
  Country: None (occurrence: None)
  Receive Date: 20060512
  Receipt Date: 20050727
  Transmission Date: 20061013
  Serious: Yes (Other)
  Sender: FDA-Public Use
  Company Number: US-BRISTOL-MYERS SQUIBB COMPANY-13052915

PATIENT
  Age: 80 Year
  Sex: Male
  Weight: 59 kg

DRUGS (8)
  1. CYTOXAN [Suspect]
     Indication: WHITE BLOOD CELL COUNT INCREASED
  2. ALTACE [Concomitant]
  3. ALLOPURINOL [Concomitant]
  4. FOSAMAX [Concomitant]
  5. CALCIUM GLUCONATE [Concomitant]
  6. MAGNESIUM [Concomitant]
  7. VITAMIN D [Concomitant]
  8. NEXIUM [Concomitant]

REACTIONS (1)
  - PLATELET COUNT DECREASED [None]
